FAERS Safety Report 9658026 (Version 2)
Quarter: 2013Q4

REPORT INFORMATION
  Report Type: Spontaneous
  Country: FR (occurrence: FR)
  Receive Date: 20131030
  Receipt Date: 20131107
  Transmission Date: 20140711
  Serious: Yes (Hospitalization)
  Sender: FDA-Public Use
  Company Number: FR-B.I. PHARMACEUTICALS,INC./RIDGEFIELD-2013-FF-02602FF

PATIENT
  Age: 86 Year
  Sex: Female

DRUGS (5)
  1. PRADAXA [Suspect]
     Indication: ATRIAL FIBRILLATION
     Dosage: 300 MG
     Route: 048
  2. FLECAINE [Concomitant]
  3. FLECTOR [Concomitant]
  4. PAROXETINE [Concomitant]
  5. LOXEN [Concomitant]

REACTIONS (2)
  - Haemorrhage intracranial [Recovered/Resolved]
  - Fall [Recovered/Resolved]
